FAERS Safety Report 20129787 (Version 1)
Quarter: 2021Q4

REPORT INFORMATION
  Report Type: Spontaneous
  Country: CA (occurrence: CA)
  Receive Date: 20211130
  Receipt Date: 20211130
  Transmission Date: 20220303
  Serious: Yes (Other)
  Sender: FDA-Public Use
  Company Number: CA-LUPIN PHARMACEUTICALS INC.-2021-23295

PATIENT
  Age: 16 Year
  Sex: Male

DRUGS (6)
  1. GABAPENTIN [Suspect]
     Active Substance: GABAPENTIN
     Indication: Testicular pain
     Dosage: 300 MILLIGRAM, TID
     Route: 048
  2. GABAPENTIN [Suspect]
     Active Substance: GABAPENTIN
     Dosage: 1200 MILLIGRAM, TID
     Route: 048
  3. OXCARBAZEPINE [Suspect]
     Active Substance: OXCARBAZEPINE
     Indication: Testicular pain
     Dosage: 150 MILLIGRAM, QD (AT BEDTIME)
     Route: 065
  4. OXCARBAZEPINE [Suspect]
     Active Substance: OXCARBAZEPINE
     Dosage: TITRATED UP TO BID
     Route: 065
  5. AMITRIPTYLINE [Suspect]
     Active Substance: AMITRIPTYLINE
     Indication: Testicular pain
     Dosage: UNK
     Route: 065
  6. NABILONE [Suspect]
     Active Substance: NABILONE
     Indication: Testicular pain
     Dosage: 1 MILLIGRAM, QD (AT NIGHT)
     Route: 065

REACTIONS (3)
  - Drug ineffective for unapproved indication [Unknown]
  - Impaired quality of life [Unknown]
  - Off label use [Unknown]
